FAERS Safety Report 21965802 (Version 2)
Quarter: 2023Q1

REPORT INFORMATION
  Report Type: Spontaneous
  Country: JP (occurrence: JP)
  Receive Date: 20230208
  Receipt Date: 20230301
  Transmission Date: 20230418
  Serious: Yes (Death, Other)
  Sender: FDA-Public Use
  Company Number: JP-TAKEDA-2023TJP001728

PATIENT
  Age: 74 Year
  Sex: Female

DRUGS (1)
  1. ALBUMIN HUMAN [Suspect]
     Active Substance: ALBUMIN HUMAN
     Indication: Blood albumin decreased
     Dosage: 12.5 GRAM
     Route: 041
     Dates: start: 20230116, end: 20230117

REACTIONS (2)
  - Dyspnoea [Fatal]
  - Renal failure [Unknown]

NARRATIVE: CASE EVENT DATE: 20230117
